FAERS Safety Report 14184895 (Version 2)
Quarter: 2021Q2

REPORT INFORMATION
  Report Type: Report from Study
  Country: KR (occurrence: KR)
  Receive Date: 20171113
  Receipt Date: 20210618
  Transmission Date: 20210716
  Serious: Yes (Hospitalization, Other)
  Sender: FDA-Public Use
  Company Number: KR-GILEAD-2017-0304411

PATIENT
  Age: 84 Year
  Sex: Female

DRUGS (7)
  1. AMARYL [Concomitant]
     Active Substance: GLIMEPIRIDE
     Indication: DIABETES MELLITUS
     Dosage: 2/500 MG, 1D
     Route: 048
     Dates: start: 20170112
  2. AMLODIPINE BESYLATE. [Concomitant]
     Active Substance: AMLODIPINE BESYLATE
     Indication: PULMONARY HYPERTENSION
     Dosage: 5/40MG, 0.5 TA, 1D
     Route: 048
     Dates: start: 20160802
  3. DILATREND [Concomitant]
     Active Substance: CARVEDILOL
     Indication: CARDIAC FAILURE CONGESTIVE
     Dosage: 16 MG, 1D
     Route: 048
     Dates: start: 20160328
  4. AMBRISENTAN [Suspect]
     Active Substance: AMBRISENTAN
     Indication: PULMONARY ARTERIAL HYPERTENSION
     Dosage: 5 MG, 1D
     Route: 048
     Dates: start: 20170908, end: 20170921
  5. LIXIANA [Concomitant]
     Active Substance: EDOXABAN TOSYLATE
     Indication: ATRIAL FIBRILLATION
     Dosage: 15 MG, 1D
     Route: 048
     Dates: start: 20170112
  6. LIPITOR [Concomitant]
     Active Substance: ATORVASTATIN CALCIUM
     Indication: HYPERLIPIDAEMIA
     Dosage: 10 MG, 1D
     Route: 048
     Dates: start: 20071220
  7. EVISTA [Concomitant]
     Active Substance: RALOXIFENE HYDROCHLORIDE
     Indication: OSTEOPOROSIS POSTMENOPAUSAL
     Dosage: 60 MG, 1D
     Route: 048
     Dates: start: 20150915

REACTIONS (3)
  - Oedema peripheral [Recovered/Resolved]
  - Dyspnoea [Recovered/Resolved]
  - Pulmonary hypertension [Recovered/Resolved]

NARRATIVE: CASE EVENT DATE: 20170919
